FAERS Safety Report 8891817 (Version 1)
Quarter: 2012Q4

REPORT INFORMATION
  Report Type: 
  Country: US (occurrence: US)
  Receive Date: 20121107
  Receipt Date: 20121107
  Transmission Date: 20130627
  Serious: No
  Sender: FDA-Public Use
  Company Number: US-AMGEN-USASP2011051061

PATIENT
  Sex: Female

DRUGS (26)
  1. ENBREL [Suspect]
     Indication: RHEUMATOID ARTHRITIS
     Dosage: 50 mg, qwk
     Dates: start: 201101
  2. ENBREL [Suspect]
     Indication: PSORIATIC ARTHROPATHY
  3. DYAZIDE [Concomitant]
  4. CYMBALTA [Concomitant]
  5. PHENERGAN                          /00033001/ [Concomitant]
  6. PREDNISONE [Concomitant]
  7. FOLIC ACID [Concomitant]
  8. VITAMIN D /00107901/ [Concomitant]
  9. IRON [Concomitant]
  10. TOPROL [Concomitant]
  11. ENJUVIA [Concomitant]
  12. PLAQUENIL                          /00072602/ [Concomitant]
  13. NORCO [Concomitant]
  14. SOMA [Concomitant]
  15. FOSAMAX [Concomitant]
  16. LYRICA [Concomitant]
  17. EVAMIST [Concomitant]
  18. SPIRIVA [Concomitant]
  19. NEXIUM                             /01479302/ [Concomitant]
  20. AMBIEN [Concomitant]
  21. NASONEX [Concomitant]
  22. METHOTREXATE [Concomitant]
  23. ADVAIR [Concomitant]
  24. ASPIRIN [Concomitant]
  25. VOLTAREN EMULGEL [Concomitant]
  26. HYDROCORTISONE BUTYRATE [Concomitant]

REACTIONS (4)
  - Drug effect incomplete [Unknown]
  - Tooth abscess [Not Recovered/Not Resolved]
  - Injection site erythema [Unknown]
  - Injection site pruritus [Unknown]
